FAERS Safety Report 14734006 (Version 1)
Quarter: 2018Q2

REPORT INFORMATION
  Report Type: Spontaneous
  Country: US (occurrence: US)
  Receive Date: 20180409
  Receipt Date: 20180409
  Transmission Date: 20180711
  Serious: Yes (Death, Hospitalization)
  Sender: FDA-Public Use
  Company Number: US-AUROBINDO-AUR-APL-2018-018395

PATIENT
  Age: 58 Year
  Sex: Male

DRUGS (3)
  1. TACROLIMUS. [Suspect]
     Active Substance: TACROLIMUS
     Dosage: 6 MILLIGRAM, TWO TIMES A DAY
     Route: 048
  2. PREDNISONE. [Suspect]
     Active Substance: PREDNISONE
     Indication: IMMUNOSUPPRESSANT DRUG THERAPY
     Dosage: 5 MILLIGRAM, ONCE A DAY
     Route: 048
  3. MYCOPHENOLATE MOFETIL. [Suspect]
     Active Substance: MYCOPHENOLATE MOFETIL
     Dosage: UNK, 360MG IN THE MORNING AND 180MG IN THE EVENING
     Route: 065

REACTIONS (8)
  - Pneumonia fungal [Unknown]
  - Pneumonia [Unknown]
  - Acute respiratory failure [Fatal]
  - Pyrexia [Unknown]
  - Lung consolidation [Unknown]
  - Dyspnoea [Unknown]
  - Anaemia [Unknown]
  - Leukopenia [Unknown]
